FAERS Safety Report 8524847-5 (Version None)
Quarter: 2012Q3

REPORT INFORMATION
  Report Type: 
  Country: None (occurrence: None)
  Receive Date: 20120720
  Receipt Date: 20120720
  Transmission Date: 20120928
  Serious: Yes (Other)
  Sender: FDA-Public Use
  Company Number: US-ROCHE-1057496

PATIENT
  Sex: Female
  Weight: 55.388 kg

DRUGS (2)
  1. XELODA [Suspect]
     Indication: BREAST CANCER METASTATIC
     Route: 048
     Dates: start: 20120301, end: 20120426
  2. RITALIN [Concomitant]
     Indication: SLEEP DISORDER
     Route: 048

REACTIONS (5)
  - FATIGUE [None]
  - BODY TEMPERATURE INCREASED [None]
  - BREAST CANCER METASTATIC [None]
  - PAIN [None]
  - ABDOMINAL PAIN LOWER [None]
